FAERS Safety Report 4298398-0 (Version None)
Quarter: 2004Q1

REPORT INFORMATION
  Report Type: 
  Country: None (occurrence: None)
  Receive Date: 20040218
  Receipt Date: 20030423
  Transmission Date: 20041129
  Serious: Yes (Other)
  Sender: FDA-Public Use
  Company Number: US-BRISTOL-MYERS SQUIBB COMPANY-12254397

PATIENT
  Sex: Female

DRUGS (7)
  1. STADOL [Suspect]
     Indication: MIGRAINE
     Route: 055
     Dates: start: 19930101
  2. STADOL [Suspect]
     Route: 030
     Dates: start: 19930901
  3. PHENERGAN [Concomitant]
  4. TORADOL [Concomitant]
     Route: 030
  5. NEURONTIN [Concomitant]
  6. TYLOX [Concomitant]
     Indication: HEADACHE
     Dosage: DOSING: EVERY 4 HOURS WHEN NECESSARY.
  7. DARVOCET [Concomitant]
     Indication: PAIN
     Dosage: DOSING: 1 EVERY 4 HOURS WHEN NECESSARY.

REACTIONS (2)
  - DEPENDENCE [None]
  - DRUG ADDICT [None]
